FAERS Safety Report 9281265 (Version 1)
Quarter: 2013Q2

REPORT INFORMATION
  Report Type: Spontaneous
  Country: US (occurrence: None)
  Receive Date: 20130508
  Receipt Date: 20130508
  Transmission Date: 20140414
  Serious: Yes (Hospitalization, Other)
  Sender: FDA-Public Use
  Company Number: None

PATIENT
  Age: 54 Year
  Sex: Female
  Weight: 54.43 kg

DRUGS (1)
  1. ACTIVELLA [Suspect]
     Indication: MENOPAUSAL SYMPTOMS
     Dosage: 1.0/0.5, DAILY, BUCCAL
     Route: 002
     Dates: start: 20080101, end: 20130506

REACTIONS (8)
  - Hyperhidrosis [None]
  - Feeling of body temperature change [None]
  - Heart rate increased [None]
  - Feeling abnormal [None]
  - Anxiety [None]
  - Phaeochromocytoma [None]
  - Weight decreased [None]
  - Psychomotor hyperactivity [None]
